FAERS Safety Report 15908867 (Version 1)
Quarter: 2019Q1

REPORT INFORMATION
  Report Type: Spontaneous
  Country: US (occurrence: US)
  Receive Date: 20190204
  Receipt Date: 20190204
  Transmission Date: 20190417
  Serious: Yes (Other)
  Sender: FDA-Public Use
  Company Number: US-ABBVIE-18K-163-2297176-00

PATIENT
  Sex: Female

DRUGS (1)
  1. HUMIRA [Suspect]
     Active Substance: ADALIMUMAB
     Indication: PRODUCT USED FOR UNKNOWN INDICATION
     Route: 058

REACTIONS (7)
  - Wound secretion [Unknown]
  - Emotional distress [Unknown]
  - Pneumonia [Unknown]
  - Dyspnoea [Unknown]
  - Skin irritation [Unknown]
  - Lupus-like syndrome [Unknown]
  - Skin lesion [Unknown]
